FAERS Safety Report 9146063 (Version 1)
Quarter: 2013Q1

REPORT INFORMATION
  Report Type: Spontaneous
  Country: JP (occurrence: JP)
  Receive Date: 20130307
  Receipt Date: 20130307
  Transmission Date: 20140127
  Serious: Yes (Other)
  Sender: FDA-Public Use
  Company Number: JP-SANOFI-AVENTIS-2013SA000698

PATIENT
  Age: 68 Year
  Sex: Female

DRUGS (4)
  1. OFLOXACIN [Suspect]
     Indication: GRANULOMA ANNULARE
     Route: 065
     Dates: start: 201001, end: 201002
  2. RIFAMPICIN [Suspect]
     Indication: GRANULOMA ANNULARE
     Route: 065
     Dates: start: 201001, end: 201002
  3. MINOCYCLINE HYDROCHLORIDE [Suspect]
     Indication: GRANULOMA ANNULARE
     Route: 065
     Dates: start: 201001, end: 201002
  4. LEVOTHYROXINE SODIUM [Concomitant]
     Indication: HYPOTHYROIDISM

REACTIONS (3)
  - Thrombocytopenia [Recovered/Resolved]
  - Granuloma annulare [Recovered/Resolved]
  - Rebound effect [Unknown]
